FAERS Safety Report 17942833 (Version 1)
Quarter: 2020Q2

REPORT INFORMATION
  Report Type: Report from Study
  Country: None (occurrence: BE)
  Receive Date: 20200624
  Receipt Date: 20200624
  Transmission Date: 20200714
  Serious: Yes (Death)
  Sender: FDA-Public Use
  Company Number: BE-ABBVIE-20K-013-3458249-00

PATIENT
  Sex: Female
  Weight: 70 kg

DRUGS (4)
  1. DUODOPA [Suspect]
     Active Substance: CARBIDOPA\LEVODOPA
     Dosage: MD=2ML, CD=2ML/HR DURING 16HRS, ED=1.5ML
     Route: 050
     Dates: start: 20200602
  2. DUODOPA [Suspect]
     Active Substance: CARBIDOPA\LEVODOPA
     Dosage: MD=2ML, CD=2.1ML/HR DURING 16HRS, ED=1.5ML
     Route: 050
     Dates: start: 20190826, end: 20200504
  3. DUODOPA [Suspect]
     Active Substance: CARBIDOPA\LEVODOPA
     Indication: PARKINSON^S DISEASE
     Dosage: STRENGTH: 20 MG/ML 5 MG/ML
     Route: 050
     Dates: start: 20130603, end: 20190826
  4. DUODOPA [Suspect]
     Active Substance: CARBIDOPA\LEVODOPA
     Dosage: MD=2ML, CD=2.3ML/HR DURING 16HRS, ED=1.5ML
     Route: 050
     Dates: start: 20200504, end: 20200602

REACTIONS (1)
  - Death [Fatal]

NARRATIVE: CASE EVENT DATE: 20200618
